FAERS Safety Report 6101477-6 (Version None)
Quarter: 2009Q1

REPORT INFORMATION
  Report Type: 
  Country: None (occurrence: None)
  Receive Date: 20090303
  Receipt Date: 20090303
  Transmission Date: 20090719
  Serious: Yes (Other)
  Sender: FDA-Public Use
  Company Number: None

PATIENT
  Age: 66 Year
  Sex: Female
  Weight: 97.5234 kg

DRUGS (1)
  1. AMBIEN [Suspect]
     Indication: INSOMNIA
     Dosage: 10 MG  QHS PO
     Route: 048
     Dates: start: 20050101, end: 20090225

REACTIONS (12)
  - ABNORMAL SLEEP-RELATED EVENT [None]
  - CONTUSION [None]
  - DISORIENTATION [None]
  - FALL [None]
  - HAEMORRHAGE [None]
  - IMPAIRED HEALING [None]
  - INCISION SITE HAEMORRHAGE [None]
  - MENTAL DISORDER [None]
  - PAIN [None]
  - PAINFUL RESPIRATION [None]
  - RIB FRACTURE [None]
  - WOUND DEHISCENCE [None]
